FAERS Safety Report 6467051-7 (Version None)
Quarter: 2009Q4

REPORT INFORMATION
  Report Type: 
  Country: None (occurrence: None)
  Receive Date: 20091127
  Receipt Date: 20090626
  Transmission Date: 20100525
  Serious: Yes (Disabling)
  Sender: FDA-Public Use
  Company Number: ADR5782009

PATIENT
  Age: 42 Year
  Sex: Female

DRUGS (2)
  1. SERTRALINE HCL [Suspect]
     Indication: DEPRESSION
     Dosage: ORAL
     Route: 048
  2. IBUPROFEN [Concomitant]

REACTIONS (1)
  - OSTEONECROSIS [None]
